FAERS Safety Report 14746553 (Version 1)
Quarter: 2018Q2

REPORT INFORMATION
  Report Type: Spontaneous
  Country: US (occurrence: US)
  Receive Date: 20180405
  Receipt Date: 20180405
  Transmission Date: 20180711
  Serious: Yes (Disabling)
  Sender: FDA-Public Use
  Company Number: None

PATIENT
  Age: 69 Year
  Sex: Male
  Weight: 81 kg

DRUGS (1)
  1. GENERIC NORCO [Suspect]
     Active Substance: ACETAMINOPHEN\HYDROCODONE BITARTRATE
     Indication: BACK INJURY
     Dosage: ?          QUANTITY:75 TABLET(S);?
     Route: 048
     Dates: start: 20020403

REACTIONS (3)
  - Influenza like illness [None]
  - Paraesthesia [None]
  - Drug ineffective [None]

NARRATIVE: CASE EVENT DATE: 20180403
